FAERS Safety Report 6447635-2 (Version None)
Quarter: 2009Q4

REPORT INFORMATION
  Report Type: 
  Country: None (occurrence: None)
  Receive Date: 20091119
  Receipt Date: 20091109
  Transmission Date: 20100525
  Serious: Yes (Hospitalization)
  Sender: FDA-Public Use
  Company Number: DE-JNJCH-2009029489

PATIENT
  Sex: Female

DRUGS (2)
  1. REGAINE 2% [Suspect]
     Indication: DRUG USE FOR UNKNOWN INDICATION
     Dosage: TEXT:UNKNOWN
     Route: 061
  2. REGAINE 2% [Suspect]
     Dosage: TEXT:UNKNOWN
     Route: 061

REACTIONS (2)
  - ARRHYTHMIA [None]
  - ATRIOVENTRICULAR BLOCK [None]
